FAERS Safety Report 6691469-0 (Version None)
Quarter: 2010Q2

REPORT INFORMATION
  Report Type: 
  Country: None (occurrence: None)
  Receive Date: 20100414
  Receipt Date: 20090608
  Transmission Date: 20101027
  Serious: Yes (Other)
  Sender: FDA-Public Use
  Company Number: 09-255

PATIENT
  Age: 58 Year
  Sex: Female

DRUGS (6)
  1. ALEVE [Suspect]
     Indication: ARTHRITIS
     Dosage: ORAL; 660 MG, ONCE, ORAL
     Route: 048
     Dates: start: 20060509, end: 20090109
  2. ALEVE [Suspect]
     Indication: ARTHRITIS
     Dosage: ORAL; 660 MG, ONCE, ORAL
     Route: 048
     Dates: start: 20080101
  3. BENICOT [Concomitant]
  4. ATENTOLOL [Concomitant]
  5. VITAMIN D [Concomitant]
  6. ULTA MEGA MULTIVITAMIN [Concomitant]

REACTIONS (2)
  - ABDOMINAL DISCOMFORT [None]
  - HAEMATOCHEZIA [None]
